FAERS Safety Report 7603731-5 (Version None)
Quarter: 2011Q3

REPORT INFORMATION
  Report Type: 
  Country: None (occurrence: None)
  Receive Date: 20110712
  Receipt Date: 20110616
  Transmission Date: 20111222
  Serious: Yes (Death, Hospitalization)
  Sender: FDA-Public Use
  Company Number: US-GLAXOSMITHKLINE-A0659489A

PATIENT
  Sex: Male
  Weight: 86.4 kg

DRUGS (11)
  1. ZETIA [Concomitant]
  2. AVANDIA [Suspect]
     Indication: TYPE 2 DIABETES MELLITUS
     Dosage: 4MG TWICE PER DAY
     Route: 065
     Dates: end: 20070508
  3. CIALIS [Concomitant]
  4. REQUIP [Concomitant]
  5. NEURONTIN [Concomitant]
  6. CRESTOR [Concomitant]
  7. GLIPIZIDE [Concomitant]
  8. AVANDAMET [Suspect]
     Indication: TYPE 2 DIABETES MELLITUS
     Dosage: 4MG TWICE PER DAY
     Route: 048
     Dates: end: 20070508
  9. TRICOR [Concomitant]
  10. NOVOLOG [Concomitant]
  11. BYETTA [Concomitant]

REACTIONS (3)
  - CARDIO-RESPIRATORY ARREST [None]
  - MYOCARDIAL INFARCTION [None]
  - HYPOXIC-ISCHAEMIC ENCEPHALOPATHY [None]
